FAERS Safety Report 22080196 (Version 3)
Quarter: 2024Q2

REPORT INFORMATION
  Report Type: Spontaneous
  Country: IT (occurrence: IT)
  Receive Date: 20230309
  Receipt Date: 20240401
  Transmission Date: 20240716
  Serious: Yes (Hospitalization)
  Sender: FDA-Public Use
  Company Number: IT-ROCHE-3254421

PATIENT
  Age: 79 Year
  Sex: Female
  Weight: 70 kg

DRUGS (32)
  1. TRASTUZUMAB DERUXTECAN [Suspect]
     Active Substance: TRASTUZUMAB DERUXTECAN
     Indication: HER2 positive breast cancer
     Dosage: 20 MG/ML, ONCE EVERY 4 WK
     Route: 065
     Dates: start: 20210819, end: 20220929
  2. TRASTUZUMAB [Suspect]
     Active Substance: TRASTUZUMAB
     Indication: HER2 positive breast cancer
     Dosage: 6 MG/KG, ONCE EVERY 3 WK, MOST RECENT DOSE PRIOR TO AE 2/JUL/2020
     Route: 065
     Dates: start: 20190530
  3. PERTUZUMAB [Suspect]
     Active Substance: PERTUZUMAB
     Indication: HER2 positive breast cancer
     Dosage: 420 MG ONCE IN 3 WEEKS, MOST RECENT DOSE PRIOR TO AE 14/FEB/2020
     Route: 042
     Dates: start: 20190530
  4. PERTUZUMAB [Suspect]
     Active Substance: PERTUZUMAB
     Dosage: 420 MG ONCE IN 3 WEEKS, MOST RECENT DOSE PRIOR TO AE 14/FEB/2020
     Route: 065
     Dates: start: 20190531
  5. CAPECITABINE [Suspect]
     Active Substance: CAPECITABINE
     Indication: HER2 positive breast cancer
     Dosage: 2000 MG ONCE IN 2 WEEKSMOST RECENT DOSE PRIOR TO THE EVENT: 1/MAR/2021
     Route: 048
     Dates: start: 20200702, end: 20200723
  6. CAPECITABINE [Suspect]
     Active Substance: CAPECITABINE
     Dosage: 3000 MG/KG DAILY
     Route: 048
     Dates: start: 20200723, end: 20200810
  7. CAPECITABINE [Suspect]
     Active Substance: CAPECITABINE
     Dosage: 2000 MG/KG DAILY
     Route: 048
     Dates: start: 20210301, end: 20210729
  8. CAPECITABINE [Suspect]
     Active Substance: CAPECITABINE
     Dosage: 3000 MG/KG DAILY
     Route: 048
     Dates: start: 20200911, end: 20210301
  9. HERCEPTIN [Suspect]
     Active Substance: TRASTUZUMAB
     Indication: HER2 positive breast cancer
     Dosage: 6 MG/KG, ONCE EVERY 3 WK
     Route: 065
     Dates: start: 20190530
  10. HERCEPTIN [Suspect]
     Active Substance: TRASTUZUMAB
     Dosage: 6 MG/KG, ONCE EVERY 3 WK, MOST RECENT DOSE PRIOR TO AE 2/JUL/2020
     Route: 042
     Dates: start: 20190531, end: 20200214
  11. HERCEPTIN [Suspect]
     Active Substance: TRASTUZUMAB
     Dosage: 6 MG/KG, ONCE EVERY 3 WK
     Route: 065
     Dates: start: 20200512, end: 20210729
  12. HERCEPTIN [Suspect]
     Active Substance: TRASTUZUMAB
     Dosage: 6 MG/KG, ONCE EVERY 3 WK, MOST RECENT DOSE PRIOR TO AE 2/JUL/2020
     Route: 042
     Dates: start: 20200702, end: 20210719
  13. ONTRUZANT [Suspect]
     Active Substance: TRASTUZUMAB-DTTB
     Indication: HER2 positive breast cancer
     Dosage: 6 MG/KG, ONCE EVERY 3 WK
     Route: 065
     Dates: start: 20190530
  14. ONTRUZANT [Suspect]
     Active Substance: TRASTUZUMAB-DTTB
     Dosage: 6 MG/KG, ONCE EVERY 3 WK, MOST RECENT DOSE PRIOR TO AE 2/JUL/2020
     Route: 042
     Dates: start: 20190531, end: 20200214
  15. ONTRUZANT [Suspect]
     Active Substance: TRASTUZUMAB-DTTB
     Dosage: 6 MG/KG, ONCE EVERY 3 WK
     Route: 065
     Dates: start: 20200512, end: 20210729
  16. ONTRUZANT [Suspect]
     Active Substance: TRASTUZUMAB-DTTB
     Dosage: 6 MG/KG, ONCE EVERY 3 WK, MOST RECENT DOSE PRIOR TO AE 2/JUL/2020
     Route: 042
     Dates: start: 20200702, end: 20210719
  17. KADCYLA [Suspect]
     Active Substance: ADO-TRASTUZUMAB EMTANSINE
     Indication: HER2 positive breast cancer
     Dosage: 252 MG/KG, ONCE EVERY 3 WK (MOST RECENT DOSE PRIOR TO AE 31/MAR/2020)
     Route: 042
     Dates: start: 20200310
  18. PACLITAXEL [Suspect]
     Active Substance: PACLITAXEL
     Indication: HER2 positive breast cancer
     Dosage: 80 MG/M2, ONCE EVERY 1 WK, MOST RECENT DOSE PRIOR TO AE 06/SEP/2019
     Route: 040
     Dates: start: 20190509, end: 20190906
  19. FEMARA [Suspect]
     Active Substance: LETROZOLE
     Indication: HER2 positive breast cancer
     Dosage: 2.5 MG, QD (MOST RECENT DOSE PRIOR TO AE 02/MAR/2020, FREQUENCY ONCE)
     Route: 048
     Dates: start: 20191030
  20. AROMASIN [Suspect]
     Active Substance: EXEMESTANE
     Indication: Product used for unknown indication
     Dosage: UNK
     Route: 048
     Dates: start: 20200512, end: 20200702
  21. LEVOTHYROXINE SODIUM [Concomitant]
     Active Substance: LEVOTHYROXINE SODIUM
     Indication: Product used for unknown indication
     Dosage: UNK
     Route: 065
  22. PREGABALIN [Concomitant]
     Active Substance: PREGABALIN
     Indication: Product used for unknown indication
     Dosage: UNK
     Route: 065
     Dates: start: 20210119
  23. NORMAST [Concomitant]
     Indication: Product used for unknown indication
     Dosage: UNK
     Route: 065
     Dates: start: 20210119
  24. LEVACECARNINE HYDROCHLORIDE [Concomitant]
     Active Substance: LEVACECARNINE HYDROCHLORIDE
     Indication: Product used for unknown indication
     Dosage: UNK
     Route: 065
     Dates: start: 20210119
  25. CITALOPRAM [Concomitant]
     Active Substance: CITALOPRAM\CITALOPRAM HYDROBROMIDE
     Indication: Product used for unknown indication
     Dosage: UNK
     Route: 065
     Dates: start: 20200715
  26. LOPERAMIDE HYDROCHLORIDE [Concomitant]
     Active Substance: LOPERAMIDE HYDROCHLORIDE
     Indication: Product used for unknown indication
     Dosage: UNK
     Route: 065
  27. ACETAMINOPHEN\OXYCODONE HYDROCHLORIDE [Concomitant]
     Active Substance: ACETAMINOPHEN\OXYCODONE HYDROCHLORIDE
     Indication: Product used for unknown indication
     Dosage: UNK
     Route: 065
     Dates: start: 20201022
  28. LAEVOLAC EPS [Concomitant]
     Indication: Product used for unknown indication
     Dosage: UNK
     Route: 065
  29. TAZAROTENE [Concomitant]
     Active Substance: TAZAROTENE
     Indication: Product used for unknown indication
     Dosage: UNK
     Route: 065
  30. NEURONTIN [Concomitant]
     Active Substance: GABAPENTIN
     Indication: Product used for unknown indication
     Dosage: UNK
     Route: 065
  31. MEDROL [Concomitant]
     Active Substance: METHYLPREDNISOLONE
     Indication: Product used for unknown indication
     Dosage: UNK
     Route: 065
  32. DIETARY SUPPLEMENT\HERBALS\MILK THISTLE [Concomitant]
     Active Substance: MILK THISTLE
     Indication: Product used for unknown indication
     Dosage: UNK
     Route: 065
     Dates: start: 20200420

REACTIONS (3)
  - Anal haemorrhage [Recovered/Resolved]
  - Anal haemorrhage [Recovered/Resolved]
  - Off label use [Unknown]

NARRATIVE: CASE EVENT DATE: 20221028
